FAERS Safety Report 9753168 (Version 2)
Quarter: 2015Q3

REPORT INFORMATION
  Report Type: Spontaneous
  Country: US (occurrence: US)
  Receive Date: 20131213
  Receipt Date: 20150805
  Transmission Date: 20151125
  Serious: No
  Sender: FDA-Public Use
  Company Number: US-GILEAD-2010-0026752

PATIENT
  Age: 85 Year
  Sex: Female

DRUGS (15)
  1. LIPITOR [Concomitant]
     Active Substance: ATORVASTATIN CALCIUM
  2. LETAIRIS [Suspect]
     Active Substance: AMBRISENTAN
     Indication: PULMONARY ARTERIAL HYPERTENSION
     Route: 048
     Dates: start: 20091209
  3. VIACTIV [Concomitant]
     Active Substance: CALCIUM\VITAMIN D\VITAMIN K5
  4. PROBENECID. [Concomitant]
     Active Substance: PROBENECID
  5. TOPROL XL [Concomitant]
     Active Substance: METOPROLOL SUCCINATE
  6. DILANTIN [Concomitant]
     Active Substance: PHENYTOIN
  7. ATENOLOL. [Concomitant]
     Active Substance: ATENOLOL
  8. CLONAZEPAM. [Concomitant]
     Active Substance: CLONAZEPAM
  9. CATAPRES [Concomitant]
     Active Substance: CLONIDINE HYDROCHLORIDE
  10. FUROSEMIDE. [Concomitant]
     Active Substance: FUROSEMIDE
  11. ADVAIR HFA [Concomitant]
     Active Substance: FLUTICASONE PROPIONATE\SALMETEROL XINAFOATE
  12. ZOLOFT [Concomitant]
     Active Substance: SERTRALINE HYDROCHLORIDE
  13. POTASSIUM [Concomitant]
     Active Substance: POTASSIUM
  14. PREDNISONE. [Concomitant]
     Active Substance: PREDNISONE
  15. ASPIRIN. [Concomitant]
     Active Substance: ASPIRIN

REACTIONS (1)
  - Peripheral swelling [Not Recovered/Not Resolved]

NARRATIVE: CASE EVENT DATE: 201001
